FAERS Safety Report 4325071-2 (Version None)
Quarter: 2004Q1

REPORT INFORMATION
  Report Type: 
  Country: None (occurrence: None)
  Receive Date: 20040323
  Receipt Date: 20040311
  Transmission Date: 20041129
  Serious: Yes (Life-Threatening, Hospitalization)
  Sender: FDA-Public Use
  Company Number: 03P-062-0239732-00

PATIENT
  Age: 65 Year
  Sex: Female

DRUGS (11)
  1. HUMIRA [Suspect]
     Indication: POLYARTHRITIS
     Dosage: 0.8 ML, 1 IN 2 WK, SUBCUTANEOUS
     Route: 058
     Dates: start: 20030929
  2. OFLOXACIN [Suspect]
     Indication: URINARY TRACT INFECTION
  3. METHOTREXATE [Concomitant]
  4. PREDNISOLONE [Concomitant]
  5. PANTOPRAZOLE SODIUM [Concomitant]
  6. METOPROLOL SUCCINATE [Concomitant]
  7. CIPROFLOXACIN HYDROCHLORIDE [Concomitant]
  8. ALENDRONATE SODIUM [Concomitant]
  9. PHENPROCOUMON [Concomitant]
  10. LEKOVIT CA [Concomitant]
  11. DOLMADORM [Concomitant]

REACTIONS (19)
  - ANAEMIA [None]
  - ANGIOMYOLIPOMA [None]
  - ASTHENIA [None]
  - DEEP VEIN THROMBOSIS [None]
  - GASTRIC ULCER [None]
  - GASTRITIS [None]
  - HEPATIC STEATOSIS [None]
  - HIATUS HERNIA [None]
  - HYPERTRIGLYCERIDAEMIA [None]
  - PANCREATIC DISORDER [None]
  - PNEUMONIA [None]
  - POST PROCEDURAL HAEMORRHAGE [None]
  - PULMONARY EMBOLISM [None]
  - PULMONARY INFARCTION [None]
  - PYREXIA [None]
  - RENAL NEOPLASM [None]
  - SINUS TACHYCARDIA [None]
  - SPLENOMEGALY [None]
  - URINARY TRACT INFECTION [None]
